FAERS Safety Report 14358911 (Version 2)
Quarter: 2018Q1

REPORT INFORMATION
  Report Type: Report from Study
  Country: US (occurrence: US)
  Receive Date: 20180105
  Receipt Date: 20180118
  Transmission Date: 20180509
  Serious: Yes (Hospitalization)
  Sender: FDA-Public Use
  Company Number: US-SEATTLE GENETICS-2017SGN03105

PATIENT
  Age: 46 Year
  Sex: Female
  Weight: 98.4 kg

DRUGS (17)
  1. MESNA. [Suspect]
     Active Substance: MESNA
     Indication: HODGKIN^S DISEASE
     Dosage: 5000 MG/M2, QCYCLE
     Route: 042
     Dates: start: 20171107, end: 20171208
  2. ZYRTEC [Suspect]
     Active Substance: CETIRIZINE HYDROCHLORIDE
  3. BRENTUXIMAB VEDOTIN [Suspect]
     Active Substance: BRENTUXIMAB VEDOTIN
     Indication: HODGKIN^S DISEASE
     Dosage: 1.5 MG/KG, QCYCLE
     Route: 042
     Dates: start: 20171106, end: 20171206
  4. OXYCODONE [Concomitant]
     Active Substance: OXYCODONE
  5. ZOLPIDEM [Concomitant]
     Active Substance: ZOLPIDEM\ZOLPIDEM TARTRATE
  6. ACYCLOVIR                          /00587301/ [Concomitant]
     Active Substance: ACYCLOVIR
     Indication: PROPHYLAXIS
  7. ONDANSETRON [Concomitant]
     Active Substance: ONDANSETRON
  8. CLARITIN [Concomitant]
     Active Substance: LORATADINE
  9. BACTRIM [Concomitant]
     Active Substance: SULFAMETHOXAZOLE\TRIMETHOPRIM
     Indication: PROPHYLAXIS
  10. MIRALAX [Concomitant]
     Active Substance: POLYETHYLENE GLYCOL 3350
  11. FAMOTIDINE. [Concomitant]
     Active Substance: FAMOTIDINE
  12. IBUPROFEN. [Concomitant]
     Active Substance: IBUPROFEN
  13. ETOPOSIDE. [Suspect]
     Active Substance: ETOPOSIDE
     Indication: HODGKIN^S DISEASE
     Dosage: 100 MG/M2, QCYCLE
     Route: 042
     Dates: start: 20171106, end: 20171209
  14. IFOSFAMIDE. [Suspect]
     Active Substance: IFOSFAMIDE
     Indication: HODGKIN^S DISEASE
     Dosage: 5000 MG/M2, QCYCLE
     Route: 042
     Dates: start: 20171107, end: 20171208
  15. CARBOPLATIN. [Suspect]
     Active Substance: CARBOPLATIN
     Indication: HODGKIN^S DISEASE
     Dosage: UNK
     Route: 042
     Dates: start: 20171107, end: 20171207
  16. SENNA                              /00142201/ [Concomitant]
     Active Substance: SENNA LEAF
  17. TYLENOL [Concomitant]
     Active Substance: ACETAMINOPHEN

REACTIONS (3)
  - Pyrexia [Recovered/Resolved]
  - Hypotension [Recovered/Resolved]
  - Gastroenteritis [Recovered/Resolved]

NARRATIVE: CASE EVENT DATE: 20171208
